FAERS Safety Report 24202203 (Version 3)
Quarter: 2024Q3

REPORT INFORMATION
  Report Type: Spontaneous
  Country: US (occurrence: US)
  Receive Date: 20240812
  Receipt Date: 20240926
  Transmission Date: 20241017
  Serious: No
  Sender: ABBVIE
  Company Number: US-ABBVIE-5872552

PATIENT
  Age: 74 Year
  Sex: Male
  Weight: 91 kg

DRUGS (2)
  1. OZURDEX [Suspect]
     Active Substance: DEXAMETHASONE
     Indication: Uveitis
     Dosage: TIME INTERVAL: AS NECESSARY: FREQUENCY: ONCE EVERY THREE MONTHS, FORM STRENGTH: 0.7 MG
     Route: 050
     Dates: start: 2022, end: 2022
  2. OZURDEX [Suspect]
     Active Substance: DEXAMETHASONE
     Dosage: TIME INTERVAL: AS NECESSARY: FREQUENCY: ONCE EVERY THREE MONTHS, FORM STRENGTH: 0.7 MG
     Route: 050
     Dates: start: 202408, end: 202408

REACTIONS (6)
  - Eye colour change [Recovered/Resolved]
  - Eye inflammation [Not Recovered/Not Resolved]
  - Ocular discomfort [Unknown]
  - Dizziness [Recovered/Resolved]
  - Device breakage [Unknown]
  - Nausea [Recovered/Resolved]

NARRATIVE: CASE EVENT DATE: 20240801
